FAERS Safety Report 14321420 (Version 1)
Quarter: 2017Q4

REPORT INFORMATION
  Report Type: Other
  Country: IT (occurrence: IT)
  Receive Date: 20171223
  Receipt Date: 20171223
  Transmission Date: 20180321
  Serious: Yes (Life-Threatening, Hospitalization, Other)
  Sender: FDA-Public Use
  Company Number: IT-GLENMARK PHARMACEUTICALS-2016GMK030161

PATIENT

DRUGS (5)
  1. BENDAMUSTINE [Suspect]
     Active Substance: BENDAMUSTINE
     Indication: HODGKIN^S DISEASE
     Dosage: 90 MG/M2, UNK
     Route: 065
  2. DACARBAZINE. [Suspect]
     Active Substance: DACARBAZINE
     Indication: HODGKIN^S DISEASE
     Dosage: 375 MG/M2, INFUSION,637 MG IN SF 250CC IN 60 ; CYCLICAL
     Route: 065
  3. VINBLASTINE [Suspect]
     Active Substance: VINBLASTINE
     Indication: HODGKIN^S DISEASE
     Dosage: 6 MG/M2, INFUSION, 10.2 MG IN PUSH; CYCLICAL
     Route: 065
  4. ADRIAMYCIN [Suspect]
     Active Substance: DOXORUBICIN HYDROCHLORIDE
     Indication: HODGKIN^S DISEASE
     Dosage: 25 MG/M2, INFUSION,42 MG IN SF 100CC IN 30 ; CYCLICAL
     Route: 065
  5. BLEOMYCIN [Suspect]
     Active Substance: BLEOMYCIN SULFATE
     Indication: HODGKIN^S DISEASE
     Dosage: 10 MG/M2, INFUSION,17 MG IN SF 100 CC IN 30; CYCLICAL
     Route: 065

REACTIONS (12)
  - Pulmonary oedema [Recovered/Resolved]
  - Troponin I increased [Recovered/Resolved]
  - Cardiogenic shock [Recovered/Resolved]
  - Cardiac failure acute [Recovered/Resolved]
  - Cardiotoxicity [Recovered/Resolved]
  - Cold sweat [Recovered/Resolved]
  - Blood pressure systolic decreased [Recovered/Resolved]
  - Left ventricular dysfunction [Recovered/Resolved]
  - Hypokinesia [Recovered/Resolved]
  - Off label use [Unknown]
  - Confusional state [Recovered/Resolved]
  - Pulse pressure decreased [Recovered/Resolved]
